FAERS Safety Report 23551377 (Version 1)
Quarter: 2024Q1

REPORT INFORMATION
  Report Type: Spontaneous
  Country: US (occurrence: US)
  Receive Date: 20240222
  Receipt Date: 20240222
  Transmission Date: 20240409
  Serious: No
  Sender: FDA-Public Use
  Company Number: US-AMGEN-USASP2024033768

PATIENT
  Sex: Female

DRUGS (2)
  1. MVASI [Suspect]
     Active Substance: BEVACIZUMAB-AWWB
     Indication: Radiation necrosis
     Dosage: 100 MILLIGRAM (DOSE ORDERED:  1000 MG, DOSE REQUESTED: 2X400 MG, 2X100 MG)
     Route: 065
  2. MVASI [Suspect]
     Active Substance: BEVACIZUMAB-AWWB
     Indication: Prophylaxis
     Dosage: 400 MILLIGRAM, (DOSE ORDERED:  1000 MG, DOSE REQUESTED: 2X400 MG, 2X100 MG)
     Route: 065

REACTIONS (1)
  - Product preparation error [Unknown]
